FAERS Safety Report 4464991-5 (Version None)
Quarter: 2004Q4

REPORT INFORMATION
  Report Type: 
  Country: None (occurrence: None)
  Receive Date: 20041004
  Receipt Date: 20040524
  Transmission Date: 20050328
  Serious: No
  Sender: FDA-Public Use
  Company Number: 370326

PATIENT
  Age: 80 Year
  Sex: Female

DRUGS (8)
  1. COREG [Suspect]
     Dosage: 6.25MG TWICE PER DAY
     Route: 048
  2. FOLIC ACID [Concomitant]
  3. SPIRONOLACTONE [Concomitant]
  4. COUMADIN [Concomitant]
  5. LANOXIN [Concomitant]
  6. POTASSIUM [Concomitant]
  7. LASIX [Concomitant]
  8. FERROUS SULFATE TAB [Concomitant]

REACTIONS (2)
  - BLOOD PRESSURE DECREASED [None]
  - DIZZINESS [None]
